FAERS Safety Report 6800926-5 (Version None)
Quarter: 2010Q2

REPORT INFORMATION
  Report Type: 
  Country: None (occurrence: None)
  Receive Date: 20100629
  Receipt Date: 20100616
  Transmission Date: 20101027
  Serious: Yes (Other)
  Sender: FDA-Public Use
  Company Number: PHHY2010DE39392

PATIENT
  Age: 39 Year
  Sex: Male

DRUGS (1)
  1. DICLOFENAC SODIUM [Suspect]
     Indication: ANKYLOSING SPONDYLITIS
     Dosage: UNK

REACTIONS (16)
  - ANAEMIA [None]
  - COLITIS [None]
  - COLITIS ULCERATIVE [None]
  - COLONIC STENOSIS [None]
  - DIARRHOEA [None]
  - DIARRHOEA HAEMORRHAGIC [None]
  - GASTROINTESTINAL DISORDER [None]
  - GASTROINTESTINAL EROSION [None]
  - GASTROINTESTINAL NECROSIS [None]
  - INTESTINAL ULCER [None]
  - LARGE INTESTINAL ULCER [None]
  - LYMPHOID TISSUE HYPERPLASIA [None]
  - RETROPERITONEAL FIBROSIS [None]
  - SKIN STRIAE [None]
  - SURGERY [None]
  - WEIGHT INCREASED [None]
